FAERS Safety Report 15763255 (Version 3)
Quarter: 2019Q1

REPORT INFORMATION
  Report Type: Report from Study
  Country: US (occurrence: US)
  Receive Date: 20181227
  Receipt Date: 20190326
  Transmission Date: 20190417
  Serious: Yes (Hospitalization, Other)
  Sender: FDA-Public Use
  Company Number: US-ACTELION-A-US2014-97682

PATIENT
  Sex: Female

DRUGS (4)
  1. TRACLEER [Suspect]
     Active Substance: BOSENTAN
     Indication: PULMONARY ARTERIAL HYPERTENSION
     Dosage: UNK
     Route: 048
  2. OXYGEN. [Concomitant]
     Active Substance: OXYGEN
  3. ADCIRCA [Concomitant]
     Active Substance: TADALAFIL
  4. XARELTO [Concomitant]
     Active Substance: RIVAROXABAN
     Dosage: UNK

REACTIONS (10)
  - Dyspnoea [Recovering/Resolving]
  - Pulmonary thrombosis [Unknown]
  - Syncope [Recovering/Resolving]
  - Pulmonary oedema [Unknown]
  - Mouth breathing [Unknown]
  - Epistaxis [Unknown]
  - Condition aggravated [Unknown]
  - Pulmonary arterial hypertension [Recovering/Resolving]
  - Pulmonary embolism [Unknown]
  - Cardiac failure [Unknown]

NARRATIVE: CASE EVENT DATE: 2014
